FAERS Safety Report 20423426 (Version 4)
Quarter: 2022Q2

REPORT INFORMATION
  Report Type: Spontaneous
  Country: CA (occurrence: CA)
  Receive Date: 20220203
  Receipt Date: 20220629
  Transmission Date: 20220721
  Serious: Yes (Other)
  Sender: FDA-Public Use
  Company Number: CA-PFIZER INC-202200154648

PATIENT
  Age: 68 Year
  Sex: Male

DRUGS (2)
  1. XELJANZ [Suspect]
     Active Substance: TOFACITINIB CITRATE
     Indication: Rheumatoid arthritis
     Dosage: 5MG, 2X/DAY
     Route: 048
     Dates: start: 20150518, end: 2022
  2. PREDNISONE [Concomitant]
     Active Substance: PREDNISONE
     Dosage: 5 MG, 1X/DAY

REACTIONS (6)
  - Osteoarthritis [Not Recovered/Not Resolved]
  - Glossitis [Not Recovered/Not Resolved]
  - Drug ineffective [Unknown]
  - Therapeutic product effect incomplete [Unknown]
  - Synovial cyst [Unknown]
  - Arthritis [Unknown]

NARRATIVE: CASE EVENT DATE: 20220101
